FAERS Safety Report 4441107-2 (Version None)
Quarter: 2004Q3

REPORT INFORMATION
  Report Type: 
  Country: None (occurrence: None)
  Receive Date: 20040902
  Receipt Date: 20040902
  Transmission Date: 20050211
  Serious: Yes (Other)
  Sender: FDA-Public Use
  Company Number: None

PATIENT
  Age: 79 Year
  Sex: Female
  Weight: 63.5036 kg

DRUGS (3)
  1. DIOVAN [Suspect]
     Indication: CARDIAC DISORDER
     Dates: start: 20040814, end: 20040816
  2. DIOVAN [Suspect]
     Indication: CEREBROVASCULAR ACCIDENT
     Dates: start: 20040814, end: 20040816
  3. DIOVAN [Suspect]
     Indication: HYPERTENSION
     Dates: start: 20040814, end: 20040816

REACTIONS (1)
  - DYSPNOEA [None]
